FAERS Safety Report 8531833-8 (Version None)
Quarter: 2012Q3

REPORT INFORMATION
  Report Type: 
  Country: None (occurrence: None)
  Receive Date: 20120723
  Receipt Date: 20120717
  Transmission Date: 20120928
  Serious: No
  Sender: FDA-Public Use
  Company Number: US-PFIZER INC-2012172925

PATIENT
  Sex: Male
  Weight: 81.633 kg

DRUGS (4)
  1. XYZAL [Concomitant]
     Indication: SINUS DISORDER
     Dosage: UNK
  2. TRICOR [Concomitant]
     Indication: BLOOD TRIGLYCERIDES ABNORMAL
     Dosage: UNK
  3. VIAGRA [Suspect]
     Indication: ERECTILE DYSFUNCTION
     Dosage: 100 MG, 2X/WEEK
     Route: 048
  4. VIAGRA [Suspect]
     Dosage: 100 MG, WEEKLY
     Route: 048

REACTIONS (2)
  - DRUG INEFFECTIVE [None]
  - INCORRECT PRODUCT STORAGE [None]
